FAERS Safety Report 9415392 (Version 1)
Quarter: 2013Q3

REPORT INFORMATION
  Report Type: Spontaneous
  Country: US (occurrence: US)
  Receive Date: 20130723
  Receipt Date: 20130723
  Transmission Date: 20140515
  Serious: No
  Sender: FDA-Public Use
  Company Number: US-ROXANE LABORATORIES, INC.-2013-RO-01111RO

PATIENT
  Sex: 0

DRUGS (2)
  1. LOSARTAN POTASSIUM USP [Suspect]
  2. HYDROCHLOROTHIAZIDE [Suspect]

REACTIONS (1)
  - Abdominal pain [Unknown]
